FAERS Safety Report 9764189 (Version 1)
Quarter: 2013Q4

REPORT INFORMATION
  Report Type: Spontaneous
  Country: US (occurrence: US)
  Receive Date: 20131216
  Receipt Date: 20131216
  Transmission Date: 20140711
  Serious: Yes (Death)
  Sender: FDA-Public Use
  Company Number: PHEH2013US025705

PATIENT
  Sex: Male

DRUGS (3)
  1. CLOZARIL [Suspect]
     Dosage: UNK
     Route: 048
  2. CLOZARIL [Suspect]
     Dosage: 100 MG, OVER A WEEKEND
     Route: 048
  3. CLOZARIL [Suspect]
     Dosage: 100 MG, UNK
     Route: 048
     Dates: start: 20131209

REACTIONS (2)
  - Pneumonia klebsiella [Fatal]
  - Sepsis [Fatal]
